FAERS Safety Report 9099695 (Version 2)
Quarter: 2013Q1

REPORT INFORMATION
  Report Type: Spontaneous
  Country: CL (occurrence: CL)
  Receive Date: 20130215
  Receipt Date: 20130221
  Transmission Date: 20140127
  Serious: Yes (Other)
  Sender: FDA-Public Use
  Company Number: PHHY2013CL014600

PATIENT
  Age: 73 Year
  Sex: Female
  Weight: 57 kg

DRUGS (6)
  1. ACLASTA [Suspect]
     Indication: OSTEOPOROSIS
     Dosage: UNK UKN, UNK
     Route: 042
     Dates: start: 201107
  2. ACLASTA [Suspect]
     Dosage: UNK
     Route: 042
     Dates: start: 201208
  3. ASPIRIN [Concomitant]
     Indication: CARDIAC DISORDER
     Dosage: 100 MG, QD. SINCE FEW MONTHS AGO
     Route: 048
  4. HYDROCHLOROTHIAZIDE [Concomitant]
     Indication: FLUID RETENTION
     Dosage: 0.5 DF (50 MG: HALF TABLET A DAY). SINCE FEW MONTHS AGO
     Route: 048
  5. ATORVASTATINA [Concomitant]
     Indication: BLOOD CHOLESTEROL
     Dosage: 20 MG, QD. SINCE LAST FRIDAY
     Route: 048
  6. PARACETAMOL [Concomitant]
     Indication: OSTEOARTHRITIS
     Dosage: 500 MG, PRN. SINCE FEW MONTH AGO
     Route: 048

REACTIONS (11)
  - Pneumonia [Recovered/Resolved]
  - Fall [Unknown]
  - Ligament sprain [Not Recovered/Not Resolved]
  - Pain [Not Recovered/Not Resolved]
  - Inflammation [Not Recovered/Not Resolved]
  - Drug administration error [Unknown]
  - Blood cholesterol increased [Unknown]
  - Hypotension [Unknown]
  - Hypertension [Recovering/Resolving]
  - Headache [Unknown]
  - Dizziness [Unknown]
